FAERS Safety Report 4445917-7 (Version None)
Quarter: 2004Q3

REPORT INFORMATION
  Report Type: 
  Country: None (occurrence: None)
  Receive Date: 20040908
  Receipt Date: 20040908
  Transmission Date: 20050211
  Serious: Yes (Hospitalization)
  Sender: FDA-Public Use
  Company Number: None

PATIENT
  Age: 84 Year
  Sex: Male

DRUGS (8)
  1. METOPROLOL [Suspect]
     Indication: HYPERTENSION
     Dosage: 25 MG BID
     Dates: start: 20040501
  2. PLAVIX [Concomitant]
  3. FOSINOPRIL SODIUM [Concomitant]
  4. NITROGLYCERIN [Concomitant]
  5. OMEPRAZOLE [Concomitant]
  6. SERTRALINE HCL [Concomitant]
  7. ZOCOR [Concomitant]
  8. GUAIFENESIN [Concomitant]

REACTIONS (1)
  - BRADYCARDIA [None]
